FAERS Safety Report 12519542 (Version 1)
Quarter: 2016Q2

REPORT INFORMATION
  Report Type: Spontaneous
  Country: US (occurrence: US)
  Receive Date: 20160630
  Receipt Date: 20160630
  Transmission Date: 20160815
  Serious: Yes (Other)
  Sender: FDA-Public Use
  Company Number: US-TEVA-672513USA

PATIENT
  Age: 51 Year
  Sex: Female

DRUGS (5)
  1. APRISO [Concomitant]
     Active Substance: MESALAMINE
  2. CITALOPRAM [Concomitant]
     Active Substance: CITALOPRAM HYDROBROMIDE
  3. MONTELUKAST [Concomitant]
     Active Substance: MONTELUKAST SODIUM
  4. BISOPROLOL FUMARATE. [Concomitant]
     Active Substance: BISOPROLOL FUMARATE
  5. COPAXONE [Suspect]
     Active Substance: GLATIRAMER ACETATE
     Indication: MULTIPLE SCLEROSIS
     Route: 058
     Dates: start: 20160524

REACTIONS (1)
  - Oropharyngeal pain [Unknown]

NARRATIVE: CASE EVENT DATE: 201605
